FAERS Safety Report 6151560-4 (Version None)
Quarter: 2009Q2

REPORT INFORMATION
  Report Type: 
  Country: None (occurrence: None)
  Receive Date: 20090410
  Receipt Date: 20090403
  Transmission Date: 20091009
  Serious: Yes (Other)
  Sender: FDA-Public Use
  Company Number: US-ASTRAZENECA-2009UW07698

PATIENT
  Age: 68 Year
  Sex: Male

DRUGS (12)
  1. SYMBICORT [Suspect]
     Indication: ASTHMA
     Dosage: 160/4.5 UG TWO PUFFS TWICE DAILY
     Route: 055
     Dates: end: 20090212
  2. SYMBICORT [Suspect]
     Indication: CHRONIC OBSTRUCTIVE PULMONARY DISEASE
     Dosage: 160/4.5 UG TWO PUFFS TWICE DAILY
     Route: 055
     Dates: end: 20090212
  3. PROAIR HFA [Concomitant]
  4. ATENOLOL [Concomitant]
  5. ZOCOR [Concomitant]
  6. COUMADIN [Concomitant]
  7. AMLODIPINE [Concomitant]
  8. PROTONIX [Concomitant]
  9. LOVAZA [Concomitant]
  10. BAYER [Concomitant]
  11. CLARITIN [Concomitant]
     Indication: RHINITIS
  12. CLARITIN [Concomitant]
     Indication: EYE PRURITUS

REACTIONS (3)
  - CARDIAC DISORDER [None]
  - CHEST PAIN [None]
  - STENT PLACEMENT [None]
